FAERS Safety Report 9922839 (Version 1)
Quarter: 2014Q1

REPORT INFORMATION
  Report Type: Spontaneous
  Country: US (occurrence: US)
  Receive Date: 20140225
  Receipt Date: 20140225
  Transmission Date: 20141002
  Serious: No
  Sender: FDA-Public Use
  Company Number: US-009507513-1402USA011236

PATIENT
  Age: 76 Year
  Sex: Female
  Weight: 59.6 kg

DRUGS (1)
  1. DEXAMETHASONE [Suspect]
     Route: 048

REACTIONS (1)
  - Drug hypersensitivity [Unknown]
